FAERS Safety Report 15955246 (Version 1)
Quarter: 2019Q1

REPORT INFORMATION
  Report Type: Spontaneous
  Country: AR (occurrence: AR)
  Receive Date: 20190213
  Receipt Date: 20190213
  Transmission Date: 20190417
  Serious: Yes (Hospitalization, Other)
  Sender: FDA-Public Use
  Company Number: AR-TAKEDA-2019TUS005161

PATIENT
  Age: 56 Year
  Sex: Male

DRUGS (1)
  1. VELCADE [Suspect]
     Active Substance: BORTEZOMIB
     Indication: PRODUCT USED FOR UNKNOWN INDICATION
     Dosage: 3 MILLIGRAM
     Route: 065

REACTIONS (2)
  - Renal disorder [Unknown]
  - Plasma cell myeloma [Unknown]
